FAERS Safety Report 4997755-4 (Version None)
Quarter: 2006Q2

REPORT INFORMATION
  Report Type: 
  Country: None (occurrence: None)
  Receive Date: 20060505
  Receipt Date: 20060420
  Transmission Date: 20061013
  Serious: Yes (Death, Hospitalization)
  Sender: FDA-Public Use
  Company Number: 200611697BCC

PATIENT
  Sex: Female
  Weight: 58.9676 kg

DRUGS (2)
  1. ALEVE [Suspect]
     Indication: ARTHRALGIA
     Dosage: 440 MG, TOTAL DAILY, ORAL;  220 MG, QD, ORAL
     Route: 048
  2. NATURAL HERBS [Concomitant]

REACTIONS (3)
  - CONTUSION [None]
  - HAEMORRHAGE [None]
  - WHITE BLOOD CELL COUNT DECREASED [None]
